FAERS Safety Report 7810854-4 (Version None)
Quarter: 2011Q4

REPORT INFORMATION
  Report Type: 
  Country: None (occurrence: None)
  Receive Date: 20111011
  Receipt Date: 20110926
  Transmission Date: 20120403
  Serious: Yes (Hospitalization)
  Sender: FDA-Public Use
  Company Number: L0C-00948

PATIENT
  Age: 80 Year
  Sex: Female

DRUGS (1)
  1. LOCOID [Suspect]
     Dosage: TOPICAL
     Route: 061
     Dates: start: 20110819, end: 20110822

REACTIONS (3)
  - SKIN INFECTION [None]
  - ECZEMA [None]
  - RASH [None]
